FAERS Safety Report 11614922 (Version 2)
Quarter: 2015Q4

REPORT INFORMATION
  Report Type: Spontaneous
  Country: PT (occurrence: PT)
  Receive Date: 20151009
  Receipt Date: 20151030
  Transmission Date: 20160304
  Serious: Yes (Death, Other)
  Sender: FDA-Public Use
  Company Number: PT-ROCHE-1642739

PATIENT
  Age: 73 Year
  Sex: Male
  Weight: 76 kg

DRUGS (5)
  1. LEVEMIR [Concomitant]
     Active Substance: INSULIN DETEMIR
     Indication: TYPE 2 DIABETES MELLITUS
     Dosage: 8 + 0 + 5
     Route: 058
     Dates: start: 2012, end: 201504
  2. FUROSEMIDE. [Concomitant]
     Active Substance: FUROSEMIDE
     Route: 048
     Dates: start: 201404, end: 201504
  3. CLOPIDOGREL [Concomitant]
     Active Substance: CLOPIDOGREL BISULFATE
     Route: 048
     Dates: end: 201504
  4. ESBRIET [Suspect]
     Active Substance: PIRFENIDONE
     Indication: IDIOPATHIC PULMONARY FIBROSIS
     Dosage: 3 + 3 + 3
     Route: 048
     Dates: start: 201412, end: 201504
  5. LISINOPRIL. [Concomitant]
     Active Substance: LISINOPRIL
     Route: 048
     Dates: end: 201504

REACTIONS (2)
  - Pneumonia bacterial [Fatal]
  - Skin toxicity [Recovered/Resolved]

NARRATIVE: CASE EVENT DATE: 201502
